FAERS Safety Report 12360466 (Version 3)
Quarter: 2016Q2

REPORT INFORMATION
  Report Type: Spontaneous
  Country: US (occurrence: US)
  Receive Date: 20160512
  Receipt Date: 20160621
  Transmission Date: 20160815
  Serious: Yes (Death, Hospitalization, Other)
  Sender: FDA-Public Use
  Company Number: US-PFIZER INC-2016253128

PATIENT
  Age: 84 Year
  Sex: Male
  Weight: 81 kg

DRUGS (3)
  1. OXYGEN. [Concomitant]
     Active Substance: OXYGEN
     Indication: FLUID RETENTION
     Dosage: 2 L, CONSTANT
     Dates: start: 2016
  2. REVATIO [Suspect]
     Active Substance: SILDENAFIL CITRATE
     Indication: PLEURAL EFFUSION
     Dosage: UNK
     Route: 048
  3. REVATIO [Suspect]
     Active Substance: SILDENAFIL CITRATE
     Dosage: 20 MG, UNK

REACTIONS (14)
  - Death [Fatal]
  - Fall [Unknown]
  - Product use issue [Unknown]
  - Head injury [Not Recovered/Not Resolved]
  - Balance disorder [Unknown]
  - Upper limb fracture [Not Recovered/Not Resolved]
  - Weight decreased [Unknown]
  - Fluid retention [Not Recovered/Not Resolved]
  - Eye contusion [Not Recovered/Not Resolved]
  - Contusion [Unknown]
  - General physical health deterioration [Unknown]
  - Cognitive disorder [Unknown]
  - Liver disorder [Unknown]
  - Ulcer [Unknown]

NARRATIVE: CASE EVENT DATE: 2015
